FAERS Safety Report 24052602 (Version 2)
Quarter: 2024Q3

REPORT INFORMATION
  Report Type: Spontaneous
  Country: JP (occurrence: JP)
  Receive Date: 20240705
  Receipt Date: 20240802
  Transmission Date: 20241017
  Serious: Yes (Death, Hospitalization, Other)
  Sender: AMGEN
  Company Number: JP-KYOWAKIRIN-2024KK015587

PATIENT
  Age: 7 Decade
  Sex: Male

DRUGS (2)
  1. DARBEPOETIN ALFA [Suspect]
     Active Substance: DARBEPOETIN ALFA
     Indication: Myelodysplastic syndrome
     Dosage: 60 UG, 1X/WEEK (60 MICROGRAMS PLUS 180 MICROGRAMS)
     Route: 058
  2. DARBEPOETIN ALFA [Suspect]
     Active Substance: DARBEPOETIN ALFA
     Dosage: 180 UG, 1X/WEEK (60 MICROGRAMS PLUS 180 MICROGRAMS)
     Route: 058

REACTIONS (3)
  - Myelodysplastic syndrome [Fatal]
  - Pneumonia [Unknown]
  - Coronavirus infection [Unknown]
